FAERS Safety Report 25217420 (Version 1)
Quarter: 2025Q2

REPORT INFORMATION
  Report Type: Report from Study
  Country: CA (occurrence: CA)
  Receive Date: 20250420
  Receipt Date: 20250420
  Transmission Date: 20250717
  Serious: Yes (Hospitalization, Other)
  Sender: JOHNSON AND JOHNSON
  Company Number: CA-JNJFOC-20241044860

PATIENT
  Age: 37 Year
  Sex: Female
  Weight: 60 kg

DRUGS (1)
  1. REMICADE [Suspect]
     Active Substance: INFLIXIMAB
     Indication: Crohn^s disease
     Route: 041

REACTIONS (3)
  - Vaginal haemorrhage [Unknown]
  - Hysterectomy [Recovering/Resolving]
  - Angiogram [Unknown]

NARRATIVE: CASE EVENT DATE: 20240101
